FAERS Safety Report 14096291 (Version 2)
Quarter: 2017Q4

REPORT INFORMATION
  Report Type: Report from Study
  Country: FR (occurrence: FR)
  Receive Date: 20171017
  Receipt Date: 20171208
  Transmission Date: 20180321
  Serious: Yes (Hospitalization)
  Sender: FDA-Public Use
  Company Number: FR-ROCHE-2006602

PATIENT
  Age: 72 Year
  Sex: Female

DRUGS (12)
  1. BLINDED ATEZOLIZUMAB [Suspect]
     Active Substance: ATEZOLIZUMAB
     Indication: OVARIAN CANCER
     Dosage: DAY 1?LAST DOSE OF BLINDED ATEZOLIZUMAB ADMINISTERED PRIOR TO AE: 10/AUG/2017
     Route: 042
     Dates: start: 20170317, end: 20170828
  2. BEVACIZUMAB. [Suspect]
     Active Substance: BEVACIZUMAB
     Indication: OVARIAN CANCER
     Dosage: DAY 1?LAST DOSE OF BEVACIZUMAB ADMINISTERED PRIOR TO AE: 10/AUG/2017
     Route: 042
     Dates: start: 20170317, end: 20170828
  3. PACLITAXEL. [Suspect]
     Active Substance: PACLITAXEL
     Indication: OVARIAN CANCER
     Dosage: DAY 1?LAST DOSE OF BEVACIZUMAB ADMINISTERED PRIOR TO AE: 28/AUG/2017
     Route: 042
     Dates: start: 20170317
  4. LOSARTAN. [Concomitant]
     Active Substance: LOSARTAN
     Route: 065
  5. TEMERIT [Concomitant]
     Active Substance: NEBIVOLOL
     Route: 065
  6. XANAX [Concomitant]
     Active Substance: ALPRAZOLAM
     Route: 065
  7. CIFLOX (FRANCE) [Concomitant]
     Active Substance: CIPROFLOXACIN
  8. SPASFON (FRANCE) [Concomitant]
     Active Substance: PHLOROGLUCINOL\1,3,5-TRIMETHOXYBENZENE
  9. OMEPRAZOLE. [Concomitant]
     Active Substance: OMEPRAZOLE
     Route: 065
  10. BLINDED ATEZOLIZUMAB [Suspect]
     Active Substance: ATEZOLIZUMAB
     Dosage: THERAPY WITH BLINDED ATEZOLIZUMAB WAS REINTRODUCED
     Route: 042
     Dates: start: 20170925
  11. LEVOTHYROX [Concomitant]
     Active Substance: LEVOTHYROXINE
     Route: 065
  12. CARBOPLATIN. [Suspect]
     Active Substance: CARBOPLATIN
     Indication: OVARIAN CANCER
     Dosage: AREA UNDER CURVE (AUC)-5 DAY 1?LAST DOSE OF BEVACIZUMAB ADMINISTERED PRIOR TO AE: 28/AUG/2017
     Route: 042
     Dates: start: 20170317

REACTIONS (1)
  - Glomerular vascular disorder [Recovered/Resolved with Sequelae]

NARRATIVE: CASE EVENT DATE: 20170823
